FAERS Safety Report 6025848-1 (Version None)
Quarter: 2008Q4

REPORT INFORMATION
  Report Type: 
  Country: None (occurrence: None)
  Receive Date: 20081224
  Receipt Date: 20081217
  Transmission Date: 20090506
  Serious: Yes (Hospitalization)
  Sender: FDA-Public Use
  Company Number: CLOF-1000044

PATIENT
  Age: 47 Year
  Sex: Female
  Weight: 51.9 kg

DRUGS (38)
  1. CLOFARABINE (CLOFARABINE) SOLUTION FOR INFUSION [Suspect]
     Indication: ACUTE MYELOID LEUKAEMIA
     Dosage: 30 MG, QDX5, INTRAVENOUS
     Route: 042
     Dates: start: 20071019, end: 20071023
  2. BUSULFAN (BUSULFAN) [Suspect]
     Indication: ACUTE MYELOID LEUKAEMIA
     Dosage: 3.2 MG/KG, QD, INTRAVENOUS
     Route: 042
     Dates: start: 20071020, end: 20071023
  3. TACROLIMUS [Concomitant]
  4. ACTIGALL [Concomitant]
  5. PROTONIX [Concomitant]
  6. ATIVAN [Concomitant]
  7. COMPAZINE (PROCHLORPERAZINE MALEATE) [Concomitant]
  8. OXYCODONE (OXYCODONE, PARACETAMOL) [Concomitant]
  9. LEVOTHYROXINE SODIUM [Concomitant]
  10. CLONAZEPAM [Concomitant]
  11. RESTASIS (CICLOSPORIN) [Concomitant]
  12. ACYCLOVIR [Concomitant]
  13. CALCIUM CITRATE [Concomitant]
  14. FLUCONAZOLE [Concomitant]
  15. PREMARIN (ESTROGENS CONJUGATED, MEDROGESTONE) [Concomitant]
  16. SLOW-MAG (MAGNESIUM CHLORIDE ANHYDROUS) [Concomitant]
  17. PENTAMIDINE [Concomitant]
  18. NORCO [Concomitant]
  19. MAGNESIUM SULFATE [Concomitant]
  20. ATENOLOL [Concomitant]
  21. FUROSEMIDE [Concomitant]
  22. NEUPOGEN [Concomitant]
  23. VORICONAZOLE [Concomitant]
  24. MYCOPHENOLATE MOFETIL [Concomitant]
  25. LEVOFOXACIN [Concomitant]
  26. DEXAMETHASONE SODIUM PHOSPHATE [Concomitant]
  27. MICAFUNCIN SODIUM [Concomitant]
  28. PHENYTOIN SODIUM EXTENDED (PHENYTOIN SODIUM) [Concomitant]
  29. ONDANSETRON HYDROCHLORIDE [Concomitant]
  30. PROCHLORPERAZINE EDISYLATE [Concomitant]
  31. PROCHLORPERAZINE MALEATE [Concomitant]
  32. PANTOPRAZOLE [Concomitant]
  33. CYCLOSPORINE [Concomitant]
  34. OLANZAPINE [Concomitant]
  35. URSODIOL [Concomitant]
  36. SODIUM BICARBONATE [Concomitant]
  37. SODIUM CHLORIDE [Concomitant]
  38. CEFEPIME HYDROCHLORIDE [Concomitant]

REACTIONS (3)
  - ALANINE AMINOTRANSFERASE INCREASED [None]
  - ASPARTATE AMINOTRANSFERASE INCREASED [None]
  - CYTOMEGALOVIRUS VIRAEMIA [None]
